FAERS Safety Report 15849316 (Version 5)
Quarter: 2019Q4

REPORT INFORMATION
  Report Type: Spontaneous
  Country: US (occurrence: US)
  Receive Date: 20190121
  Receipt Date: 20191112
  Transmission Date: 20200122
  Serious: Yes (Death, Hospitalization)
  Sender: FDA-Public Use
  Company Number: US-JNJFOC-20190120841

PATIENT
  Sex: Female

DRUGS (17)
  1. COREG CR [Concomitant]
     Active Substance: CARVEDILOL PHOSPHATE
     Indication: CARDIOMYOPATHY
     Route: 065
  2. XARELTO [Suspect]
     Active Substance: RIVAROXABAN
     Indication: CEREBROVASCULAR ACCIDENT PROPHYLAXIS
     Route: 048
  3. OXYCODONE [Concomitant]
     Active Substance: OXYCODONE
     Route: 065
  4. AMIODARONE [Concomitant]
     Active Substance: AMIODARONE
     Route: 065
  5. KEPPRA [Concomitant]
     Active Substance: LEVETIRACETAM
     Route: 065
  6. XARELTO [Suspect]
     Active Substance: RIVAROXABAN
     Route: 048
  7. OXYCODONE [Concomitant]
     Active Substance: OXYCODONE
     Route: 065
  8. LACTULOSE. [Concomitant]
     Active Substance: LACTULOSE
     Route: 065
  9. MELATONIN [Concomitant]
     Active Substance: MELATONIN
     Route: 065
  10. XARELTO [Suspect]
     Active Substance: RIVAROXABAN
     Route: 048
  11. VIMPAT [Concomitant]
     Active Substance: LACOSAMIDE
     Route: 065
  12. ATIVAN [Concomitant]
     Active Substance: LORAZEPAM
     Dosage: BEDTIME
     Route: 065
  13. GABAPENTIN. [Concomitant]
     Active Substance: GABAPENTIN
     Route: 065
  14. XARELTO [Suspect]
     Active Substance: RIVAROXABAN
     Indication: ATRIAL FIBRILLATION
     Route: 048
     Dates: start: 201212
  15. OXYCODONE [Concomitant]
     Active Substance: OXYCODONE
     Route: 065
  16. COENZYME Q10 [Concomitant]
     Active Substance: UBIDECARENONE
     Route: 065
  17. ZOFRAN [Concomitant]
     Active Substance: ONDANSETRON HYDROCHLORIDE
     Route: 065

REACTIONS (5)
  - Sepsis [Fatal]
  - Therapy cessation [Unknown]
  - Drug abuser [Fatal]
  - Endocarditis [Recovered/Resolved]
  - Intracardiac thrombus [Fatal]

NARRATIVE: CASE EVENT DATE: 2016
